FAERS Safety Report 12783190 (Version 1)
Quarter: 2016Q3

REPORT INFORMATION
  Report Type: Spontaneous
  Country: US (occurrence: US)
  Receive Date: 20160927
  Receipt Date: 20160927
  Transmission Date: 20161109
  Serious: Yes (Other)
  Sender: FDA-Public Use
  Company Number: US-BEH-2010026741

PATIENT
  Age: 47 Year
  Sex: Female
  Weight: 94.35 kg

DRUGS (10)
  1. VIVAGLOBIN [Suspect]
     Active Substance: HUMAN IMMUNOGLOBULIN G
     Indication: IMMUNODEFICIENCY COMMON VARIABLE
     Dosage: 11.2G WEEKLY INTO 4 SITES OVER 1-2 HOURS
     Route: 058
     Dates: start: 2008
  2. VIVAGLOBIN [Suspect]
     Active Substance: HUMAN IMMUNOGLOBULIN G
     Route: 058
  3. MULTIVITAMIN [Concomitant]
     Active Substance: VITAMINS
     Dosage: ONCE DAILY
  4. VIVAGLOBIN [Suspect]
     Active Substance: HUMAN IMMUNOGLOBULIN G
     Route: 058
  5. NASACORT AQ [Concomitant]
     Active Substance: TRIAMCINOLONE ACETONIDE
     Dosage: 1 SPRAY TWICE DAILY
  6. PRILOSEC [Concomitant]
     Active Substance: OMEPRAZOLE MAGNESIUM
  7. CLARITIN-D 12 HOUR [Concomitant]
     Active Substance: LORATADINE\PSEUDOEPHEDRINE SULFATE
     Dosage: 12 HR 1 TABLET DAILY
  8. PRILOSEC [Concomitant]
     Active Substance: OMEPRAZOLE MAGNESIUM
  9. COMBIVENT [Concomitant]
     Active Substance: ALBUTEROL SULFATE\IPRATROPIUM BROMIDE
     Dosage: 2 PUFFS TWICE DAILY
  10. ASPIRIN. [Concomitant]
     Active Substance: ASPIRIN

REACTIONS (4)
  - Sinus operation [Not Recovered/Not Resolved]
  - Lactation disorder [Not Recovered/Not Resolved]
  - Increased upper airway secretion [Not Recovered/Not Resolved]
  - Blood pressure increased [Not Recovered/Not Resolved]

NARRATIVE: CASE EVENT DATE: 20101022
